FAERS Safety Report 13934444 (Version 1)
Quarter: 2017Q3

REPORT INFORMATION
  Report Type: Spontaneous
  Country: US (occurrence: US)
  Receive Date: 20170905
  Receipt Date: 20170905
  Transmission Date: 20171127
  Serious: No
  Sender: FDA-Public Use
  Company Number: US-TEVA-735960ACC

PATIENT
  Sex: Female

DRUGS (1)
  1. DICLOFENAC SODIUM 100 MG SA TAB [Suspect]
     Active Substance: DICLOFENAC SODIUM
     Route: 065

REACTIONS (1)
  - Drug ineffective [Unknown]
